FAERS Safety Report 9164407 (Version 1)
Quarter: 2013Q1

REPORT INFORMATION
  Report Type: Spontaneous
  Country: DE (occurrence: None)
  Receive Date: 20130226
  Receipt Date: 20130226
  Transmission Date: 20140127
  Serious: No
  Sender: FDA-Public Use
  Company Number: GER/GER/13/0028182

PATIENT
  Sex: Female
  Weight: 1.88 kg

DRUGS (6)
  1. VENLAFAXINE (VENLAFAXINE) [Suspect]
     Indication: PRODUCT USED FOR UNKNOWN INDICATION
     Dosage: 300MG, 1D, TRANSPLACENTAL
     Dates: start: 20111012
  2. METFORMIN (METFORMIN) [Suspect]
     Dosage: 850MG, 2 IN 1 D, TRANSPLACENTAL
  3. MELPERONE (MELPERONE) [Suspect]
     Dosage: 200MG, 1D, TRANSPLACENTAL
     Dates: start: 20111012
  4. FRAGMIN P FORTE (DALTEPARIN SODIUM) [Concomitant]
  5. KADEFUNGIN (CLOTRIMAZOL) [Concomitant]
  6. VITAMINS [Concomitant]

REACTIONS (12)
  - Congenital anomaly [None]
  - Fallot^s tetralogy [None]
  - Congenital uterine anomaly [None]
  - Anal atresia [None]
  - Congenital absence of bile ducts [None]
  - Persistent cloaca [None]
  - Spine malformation [None]
  - Atrial septal defect [None]
  - Anal atresia [None]
  - Aplasia [None]
  - Gallbladder disorder [None]
  - Foetal exposure during pregnancy [None]
